FAERS Safety Report 9764510 (Version 2)
Quarter: 2014Q1

REPORT INFORMATION
  Report Type: Spontaneous
  Country: AR (occurrence: AR)
  Receive Date: 20131217
  Receipt Date: 20140225
  Transmission Date: 20141002
  Serious: Yes (Other)
  Sender: FDA-Public Use
  Company Number: AR-AMGEN-ARGSP2013088144

PATIENT
  Age: 40 Year
  Sex: Male

DRUGS (3)
  1. ENBREL [Suspect]
     Indication: RHEUMATOID ARTHRITIS
     Dosage: 50 MG, WEEKLY
     Route: 065
     Dates: start: 20120301, end: 201208
  2. METHOTREXATE [Concomitant]
     Dosage: UNK
  3. FOLIC ACID [Concomitant]
     Dosage: UNK

REACTIONS (1)
  - Osteoarthritis [Recovered/Resolved]
